FAERS Safety Report 21957589 (Version 2)
Quarter: 2023Q1

REPORT INFORMATION
  Report Type: Spontaneous
  Country: IT (occurrence: IT)
  Receive Date: 20230206
  Receipt Date: 20230306
  Transmission Date: 20230418
  Serious: Yes (Hospitalization)
  Sender: FDA-Public Use
  Company Number: None

PATIENT
  Age: 65 Year
  Sex: Female
  Weight: 88 kg

DRUGS (3)
  1. ABEMACICLIB [Suspect]
     Active Substance: ABEMACICLIB
     Indication: Intraductal proliferative breast lesion
     Dosage: 150 MG, BID
     Route: 048
     Dates: start: 20211103, end: 20221215
  2. LETROZOLE [Concomitant]
     Active Substance: LETROZOLE
     Indication: Intraductal proliferative breast lesion
     Dosage: UNK, UNKNOWN
     Route: 065
     Dates: start: 20221103
  3. LETROZOLE [Concomitant]
     Active Substance: LETROZOLE
     Indication: Breast cancer stage IV

REACTIONS (1)
  - Drug-induced liver injury [Recovered/Resolved]

NARRATIVE: CASE EVENT DATE: 20221215
